FAERS Safety Report 19126943 (Version 1)
Quarter: 2021Q2

REPORT INFORMATION
  Report Type: Spontaneous
  Country: PL (occurrence: PL)
  Receive Date: 20210413
  Receipt Date: 20210413
  Transmission Date: 20210717
  Serious: Yes (Hospitalization)
  Sender: FDA-Public Use
  Company Number: NVSC2021PL079282

PATIENT
  Age: 93 Year
  Sex: Female

DRUGS (1)
  1. AMLOPIN [AMLODIPINE BESYLATE] [Suspect]
     Active Substance: AMLODIPINE BESYLATE
     Indication: PRODUCT USED FOR UNKNOWN INDICATION
     Dosage: 5 MG
     Route: 065

REACTIONS (30)
  - Oedema [Unknown]
  - Pruritus [Unknown]
  - Skin exfoliation [Unknown]
  - Hypoacusis [Unknown]
  - Oedema peripheral [Unknown]
  - Headache [Unknown]
  - Insomnia [Unknown]
  - Visual impairment [Unknown]
  - Skin discolouration [Unknown]
  - Malaise [Unknown]
  - Glucose urine present [Unknown]
  - Diabetes mellitus [Unknown]
  - Asthenia [Unknown]
  - Muscle spasms [Unknown]
  - Pollakiuria [Unknown]
  - Dizziness [Unknown]
  - Fatigue [Unknown]
  - Mood swings [Unknown]
  - Rhinitis ulcerative [Unknown]
  - Arthralgia [Unknown]
  - Tremor [Unknown]
  - Paraesthesia [Unknown]
  - Palpitations [Unknown]
  - Sleep disorder [Unknown]
  - Blood pressure systolic increased [Unknown]
  - Anxiety [Unknown]
  - Hypoaesthesia [Unknown]
  - Rash [Unknown]
  - Micturition disorder [Unknown]
  - Myalgia [Unknown]
